FAERS Safety Report 6567347-4 (Version None)
Quarter: 2010Q1

REPORT INFORMATION
  Report Type: 
  Country: None (occurrence: None)
  Receive Date: 20100202
  Receipt Date: 20100125
  Transmission Date: 20100710
  Serious: Yes (Other)
  Sender: FDA-Public Use
  Company Number: PHEH2010US00515

PATIENT
  Sex: Female

DRUGS (1)
  1. VIVELLE-DOT [Suspect]
     Dosage: 0.1 MG, UNK
     Route: 062

REACTIONS (4)
  - DRUG ADMINISTRATION ERROR [None]
  - SHOULDER OPERATION [None]
  - SURGERY [None]
  - VAGINAL DISORDER [None]
